FAERS Safety Report 9186389 (Version 2)
Quarter: 2013Q2

REPORT INFORMATION
  Report Type: Report from Study
  Country: AU (occurrence: AU)
  Receive Date: 20130325
  Receipt Date: 20130502
  Transmission Date: 20140414
  Serious: Yes (Hospitalization)
  Sender: FDA-Public Use
  Company Number: AU-VERTEX PHARMACEUTICALS INC.-2013-003997

PATIENT
  Age: 56 Year
  Sex: Female
  Weight: 86.1 kg

DRUGS (5)
  1. TELAPREVIR [Suspect]
     Indication: PRODUCT USED FOR UNKNOWN INDICATION
     Dosage: TABLET 375 MG, BID
     Route: 048
  2. TELAPREVIR [Suspect]
     Dosage: 1125 MG, BID
     Dates: start: 201302, end: 20130314
  3. PEGINTERFERON ALFA-2A [Suspect]
     Indication: PRODUCT USED FOR UNKNOWN INDICATION
     Dosage: DOSAGE FORM: UNSPECIFIED
     Route: 065
     Dates: start: 201302
  4. PEGINTERFERON ALFA-2A [Suspect]
     Indication: HEPATITIS C
  5. RIBAVIRIN [Suspect]
     Indication: HEPATITIS C
     Dosage: DOSAGE FORM: UNSPECIFIED
     Route: 065
     Dates: start: 201302

REACTIONS (4)
  - Hepatic failure [Unknown]
  - Ascites [Unknown]
  - Haemorrhoids [Unknown]
  - Off label use [Unknown]
